FAERS Safety Report 18735396 (Version 3)
Quarter: 2021Q2

REPORT INFORMATION
  Report Type: Spontaneous
  Country: US (occurrence: US)
  Receive Date: 20210113
  Receipt Date: 20210407
  Transmission Date: 20210717
  Serious: Yes (Other)
  Sender: FDA-Public Use
  Company Number: US-BRISTOL-MYERS SQUIBB COMPANY-BMS-2021-002264

PATIENT
  Age: 75 Year
  Sex: Female

DRUGS (1)
  1. NIVOLUMAB [Suspect]
     Active Substance: NIVOLUMAB
     Indication: ANAL CANCER METASTATIC
     Dosage: 2.4 MILLIGRAM/KILOGRAM
     Route: 065

REACTIONS (2)
  - Glomerulonephritis membranoproliferative [Recovered/Resolved]
  - Intentional product use issue [Unknown]
